FAERS Safety Report 24657541 (Version 1)
Quarter: 2024Q4

REPORT INFORMATION
  Report Type: Spontaneous
  Country: US (occurrence: US)
  Receive Date: 20241125
  Receipt Date: 20241125
  Transmission Date: 20250115
  Serious: No
  Sender: LEO PHARM
  Company Number: US-LEO Pharma-375301

PATIENT
  Age: 18 Year
  Sex: Female

DRUGS (1)
  1. ADBRY [Suspect]
     Active Substance: TRALOKINUMAB-LDRM
     Indication: Dermatitis atopic
     Dosage: INJECT 2 PENS UNDER THE SKIN ON DAY 1, THEN START MAINTENANCE DOSING AS DIRECTED ON DAY 15. STARTED
     Route: 058
     Dates: start: 202410

REACTIONS (1)
  - Nausea [Unknown]
